FAERS Safety Report 20920065 (Version 1)
Quarter: 2022Q2

REPORT INFORMATION
  Report Type: Spontaneous
  Country: US (occurrence: None)
  Receive Date: 20220604
  Receipt Date: 20220604
  Transmission Date: 20220720
  Serious: Yes (Hospitalization)
  Sender: FDA-Public Use
  Company Number: None

PATIENT
  Sex: Female
  Weight: 89 kg

DRUGS (3)
  1. CYCLOPHOSPHAMIDE [Suspect]
     Active Substance: CYCLOPHOSPHAMIDE
  2. DOXORUBICIN HYDROCHLORIDE [Concomitant]
     Active Substance: DOXORUBICIN HYDROCHLORIDE
  3. TAXOL [Concomitant]
     Active Substance: PACLITAXEL

REACTIONS (4)
  - Abdominal pain upper [None]
  - Condition aggravated [None]
  - Nausea [None]
  - Hiatus hernia [None]

NARRATIVE: CASE EVENT DATE: 20220504
